FAERS Safety Report 5915529-4 (Version None)
Quarter: 2008Q4

REPORT INFORMATION
  Report Type: 
  Country: None (occurrence: None)
  Receive Date: 20081010
  Receipt Date: 20080702
  Transmission Date: 20090506
  Serious: No
  Sender: FDA-Public Use
  Company Number: A0735819A

PATIENT
  Age: 66 Year
  Sex: Female

DRUGS (3)
  1. TYKERB [Suspect]
     Indication: BREAST CANCER
     Dosage: 5TAB PER DAY
     Route: 048
     Dates: start: 20080616, end: 20080626
  2. RADIATION [Suspect]
     Dates: start: 20080618
  3. HERCEPTIN [Concomitant]

REACTIONS (1)
  - RASH [None]
